FAERS Safety Report 6753057-7 (Version None)
Quarter: 2010Q2

REPORT INFORMATION
  Report Type: 
  Country: None (occurrence: None)
  Receive Date: 20100603
  Receipt Date: 20100601
  Transmission Date: 20101027
  Serious: Yes (Hospitalization)
  Sender: FDA-Public Use
  Company Number: US-JNJFOC-20091107739

PATIENT
  Sex: Male
  Weight: 84.46 kg

DRUGS (17)
  1. DURAGESIC-100 [Suspect]
     Indication: THERMAL BURN
     Route: 062
  2. DURAGESIC-100 [Suspect]
     Route: 062
  3. DURAGESIC-100 [Suspect]
     Route: 062
  4. DURAGESIC-100 [Suspect]
     Route: 062
  5. DURAGESIC-100 [Suspect]
     Route: 062
  6. DURAGESIC-100 [Suspect]
     Route: 062
  7. DURAGESIC-100 [Suspect]
     Indication: INJURY
     Route: 062
  8. DURAGESIC-100 [Suspect]
     Route: 062
  9. DURAGESIC-100 [Suspect]
     Route: 062
  10. DURAGESIC-100 [Suspect]
     Route: 062
  11. DURAGESIC-100 [Suspect]
     Route: 062
  12. DURAGESIC-100 [Suspect]
     Route: 062
  13. FENTANYL-100 [Suspect]
     Indication: THERMAL BURN
     Route: 062
  14. FENTANYL-100 [Suspect]
     Indication: INJURY
     Route: 062
  15. DURAGESIC-100 [Suspect]
     Route: 062
     Dates: start: 20091101
  16. DURAGESIC-100 [Suspect]
     Route: 062
     Dates: start: 20091101
  17. ALCOHOL (WINE) [Interacting]
     Indication: DRUG USE FOR UNKNOWN INDICATION

REACTIONS (5)
  - APPARENT DEATH [None]
  - DRUG EFFECT INCREASED [None]
  - DRUG INEFFECTIVE [None]
  - DRUG INTERACTION [None]
  - THERAPEUTIC RESPONSE DECREASED [None]
